FAERS Safety Report 11517955 (Version 1)
Quarter: 2015Q3

REPORT INFORMATION
  Report Type: Spontaneous
  Country: US (occurrence: US)
  Receive Date: 20150917
  Receipt Date: 20150917
  Transmission Date: 20151125
  Serious: No
  Sender: FDA-Public Use
  Company Number: US-RB-078891-15

PATIENT

DRUGS (1)
  1. MUCINEX [Suspect]
     Active Substance: GUAIFENESIN
     Indication: PRODUCT USED FOR UNKNOWN INDICATION
     Dosage: 1800MG. ,PRN
     Route: 048
     Dates: start: 20150628

REACTIONS (3)
  - Accidental overdose [Unknown]
  - Expired product administered [Unknown]
  - No adverse event [Unknown]
